FAERS Safety Report 5269156-5 (Version None)
Quarter: 2007Q1

REPORT INFORMATION
  Report Type: 
  Country: None (occurrence: None)
  Receive Date: 20070319
  Receipt Date: 20070312
  Transmission Date: 20070707
  Serious: Yes (Other)
  Sender: FDA-Public Use
  Company Number: IT-ROXANE LABORATORIES, INC-2007-BP-03478RO

PATIENT
  Age: 46 Year
  Sex: Male

DRUGS (5)
  1. LITHIUM CARBONATE [Suspect]
     Indication: DEPRESSION
     Dosage: 450 MG BID
  2. TENOFOVIR DISOPROXIL FUMARATE [Suspect]
     Indication: HIV INFECTION
     Dates: start: 20041001
  3. LAMIVUDINE [Suspect]
     Indication: HIV INFECTION
     Dates: start: 20041001
  4. ATAZANAVIR SULFATE [Suspect]
     Indication: HIV INFECTION
     Dates: start: 20041001
  5. RITONAVIR [Suspect]
     Indication: HIV INFECTION
     Dates: start: 20041001

REACTIONS (5)
  - ANXIETY [None]
  - DEPRESSED MOOD [None]
  - DRUG INTERACTION [None]
  - DRUG LEVEL DECREASED [None]
  - TREMOR [None]
